FAERS Safety Report 12087082 (Version 1)
Quarter: 2016Q1

REPORT INFORMATION
  Report Type: Spontaneous
  Country: US (occurrence: US)
  Receive Date: 20160217
  Receipt Date: 20160217
  Transmission Date: 20160526
  Serious: No
  Sender: FDA-Public Use
  Company Number: US-ALLERGAN-1523055US

PATIENT
  Sex: Female

DRUGS (3)
  1. LEVOTHYROXINE. [Concomitant]
     Active Substance: LEVOTHYROXINE
     Indication: THYROID DISORDER
  2. RESTASIS [Suspect]
     Active Substance: CYCLOSPORINE
     Indication: PRODUCT USED FOR UNKNOWN INDICATION
     Dosage: 2 GTT, BID
     Dates: start: 2015
  3. SYSTANE BALANCE [Concomitant]
     Active Substance: PROPYLENE GLYCOL

REACTIONS (5)
  - Application site exfoliation [Not Recovered/Not Resolved]
  - Incorrect route of drug administration [Unknown]
  - Vision blurred [Not Recovered/Not Resolved]
  - Eyelid pain [Not Recovered/Not Resolved]
  - Scab [Not Recovered/Not Resolved]

NARRATIVE: CASE EVENT DATE: 2015
